FAERS Safety Report 5993250-4 (Version None)
Quarter: 2008Q4

REPORT INFORMATION
  Report Type: 
  Country: None (occurrence: None)
  Receive Date: 20081210
  Receipt Date: 20081210
  Transmission Date: 20090506
  Serious: No
  Sender: FDA-Public Use
  Company Number: None

PATIENT
  Age: 64 Year
  Weight: 71.2147 kg

DRUGS (9)
  1. DEXTROAMPHETAMINE SULFATE [Suspect]
     Indication: ATTENTION DEFICIT/HYPERACTIVITY DISORDER
     Dosage: 5MG ONCE DAILY PO
     Route: 048
     Dates: start: 20070101, end: 20080728
  2. DEXTROAMPHETAMINE SLOW-RELEASE 10MG UNK [Suspect]
     Indication: ATTENTION DEFICIT/HYPERACTIVITY DISORDER
     Dosage: 10MG ONCE DAILY PO
     Route: 048
     Dates: start: 20070101, end: 20080728
  3. CARBAMAZEPINE [Concomitant]
  4. VALPROIC ACID [Concomitant]
  5. ESTRADIOL [Concomitant]
  6. TRAZODONE HCL [Concomitant]
  7. LISINOPRIL [Concomitant]
  8. LEVOTHYROXINE SODIUM [Concomitant]
  9. PARATOXINE [Concomitant]

REACTIONS (4)
  - DERMATILLOMANIA [None]
  - IMPAIRED WORK ABILITY [None]
  - PRODUCT QUALITY ISSUE [None]
  - TIC [None]
